FAERS Safety Report 5088913-1 (Version None)
Quarter: 2006Q3

REPORT INFORMATION
  Report Type: 
  Country: None (occurrence: None)
  Receive Date: 20060824
  Receipt Date: 20060824
  Transmission Date: 20061208
  Serious: Yes (Hospitalization)
  Sender: FDA-Public Use
  Company Number: None

PATIENT
  Age: 48 Year
  Sex: Male
  Weight: 58 kg

DRUGS (12)
  1. HURRICAINE SPRAY 20% BEUTLICH PHARMACEUTICALS [Suspect]
     Indication: ECHOCARDIOGRAM
     Dosage: 3 SPRAYS OROPHARINGE
     Route: 049
     Dates: start: 20060713, end: 20060713
  2. SODIUM CHLORIDE [Concomitant]
  3. METHYLENE BLUE [Concomitant]
  4. NITROGLYCERIN [Concomitant]
  5. FLUMAZNIL [Concomitant]
  6. NARCAN [Concomitant]
  7. DIGOXIN [Concomitant]
  8. ALDACTONE [Concomitant]
  9. HEPARIN [Concomitant]
  10. SODIUM CHLORIDE [Concomitant]
  11. LEVAQUIN [Concomitant]
  12. COREG [Concomitant]

REACTIONS (2)
  - BLOOD METHAEMOGLOBIN PRESENT [None]
  - SKIN DISCOLOURATION [None]
